FAERS Safety Report 8328201-0 (Version None)
Quarter: 2012Q2

REPORT INFORMATION
  Report Type: 
  Country: None (occurrence: None)
  Receive Date: 20120502
  Receipt Date: 20120426
  Transmission Date: 20120825
  Serious: Yes (Disabling)
  Sender: FDA-Public Use
  Company Number: US-PFIZER INC-2012104114

PATIENT
  Sex: Female
  Weight: 126.98 kg

DRUGS (13)
  1. GLUCOTROL [Concomitant]
     Dosage: UNK
  2. LASIX [Concomitant]
     Dosage: 20 MG, 3X/DAY
  3. LISINOPRIL [Concomitant]
     Dosage: 10 MG, 1X/DAY
  4. DEPAKOTE [Concomitant]
     Dosage: 250MG ONE IN THE MORNING AND THREE IN THE EVENING
  5. METFORMIN [Concomitant]
     Dosage: 1000 MG, 2X/DAY
  6. NEXIUM [Concomitant]
     Dosage: 40 MG, 1X/DAY
  7. AMITRIPTYLINE [Concomitant]
     Dosage: 5 MG, 2X/DAY
  8. LYRICA [Suspect]
     Indication: DIABETIC NEUROPATHY
     Dosage: 100 MG, 3X/DAY
     Route: 048
  9. MAXALT [Concomitant]
     Dosage: 5 MG, AS NEEDED
  10. GLIPIZIDE [Concomitant]
     Dosage: 10 MG, 1X/DAY
  11. SIMVASTATIN [Concomitant]
     Dosage: 50 MG, 1X/DAY
  12. CYMBALTA [Concomitant]
     Dosage: 30 MG, 3X/DAY
  13. INSULIN [Concomitant]
     Dosage: 25 ML, UNK

REACTIONS (1)
  - STRESS [None]
